FAERS Safety Report 8230849-9 (Version None)
Quarter: 2012Q1

REPORT INFORMATION
  Report Type: 
  Country: None (occurrence: None)
  Receive Date: 20120323
  Receipt Date: 20120315
  Transmission Date: 20120608
  Serious: Yes (Death, Other)
  Sender: FDA-Public Use
  Company Number: MY-CELGENEUS-101-21880-12031202

PATIENT
  Age: 61 Year
  Sex: Male

DRUGS (1)
  1. REVLIMID [Suspect]
     Indication: MULTIPLE MYELOMA
     Route: 048

REACTIONS (4)
  - INFLUENZA [None]
  - THROMBOCYTOPENIA [None]
  - ACOUSTIC NEUROMA [None]
  - TUMOUR HAEMORRHAGE [None]
